FAERS Safety Report 17803881 (Version 13)
Quarter: 2022Q2

REPORT INFORMATION
  Report Type: Report from Study
  Country: KR (occurrence: None)
  Receive Date: 20200519
  Receipt Date: 20220422
  Transmission Date: 20220721
  Serious: Yes (Hospitalization)
  Sender: FDA-Public Use
  Company Number: KR-ROCHE-2601996

PATIENT
  Age: 57 Year
  Sex: Male
  Weight: 58 kg

DRUGS (46)
  1. PLACEBO [Suspect]
     Active Substance: UNSPECIFIED INGREDIENT
     Indication: Non-small cell lung cancer
     Dosage: DATE OR MOST RECENT DOSE PRIOR TO SAE: 20/APR/2020
     Route: 042
     Dates: start: 20200420
  2. ATEZOLIZUMAB [Suspect]
     Active Substance: ATEZOLIZUMAB
     Indication: Non-small cell lung cancer
     Dosage: DATE OF MOST RECENT DOSE OF ATEZOLIZUMAB PRIOR TO AE ONSET ON 20/APR/2020: 1200 MG
     Route: 042
     Dates: start: 20200420
  3. PITAVASTATIN CALCIUM [Concomitant]
     Active Substance: PITAVASTATIN CALCIUM
     Dates: start: 2015
  4. CODAEWON FORTE [Concomitant]
     Indication: Cough
     Dates: start: 20200420, end: 20200520
  5. MEGACE ORAL SUSPENSION [Concomitant]
     Indication: Decreased appetite
     Dates: start: 20200420, end: 20200520
  6. TRAMADOL HCL [Concomitant]
     Active Substance: TRAMADOL HYDROCHLORIDE
     Indication: Chest pain
     Dates: start: 20200512, end: 20200515
  7. TRAMADOL HCL [Concomitant]
     Active Substance: TRAMADOL HYDROCHLORIDE
     Indication: Procedural pain
     Dates: start: 20200512, end: 20200515
  8. TRAMADOL HCL [Concomitant]
     Active Substance: TRAMADOL HYDROCHLORIDE
     Route: 042
     Dates: start: 20200612, end: 20200613
  9. MORPHINE HYDROCHLORIDE [Concomitant]
     Active Substance: MORPHINE HYDROCHLORIDE
     Indication: Chest pain
     Dates: start: 20200512, end: 20200515
  10. MORPHINE HYDROCHLORIDE [Concomitant]
     Active Substance: MORPHINE HYDROCHLORIDE
     Indication: Procedural pain
     Route: 042
     Dates: start: 20200612, end: 20200618
  11. METFORMIN HYDROCHLORIDE\VILDAGLIPTIN [Concomitant]
     Active Substance: METFORMIN HYDROCHLORIDE\VILDAGLIPTIN
     Indication: Diabetes mellitus
     Dosage: VILDAGLIPTIN 50MG + METFORMIN HCL 500MG
     Dates: start: 2015
  12. ACETAMINOPHEN;TRAMADOL HYDROCHLORIDE [Concomitant]
     Indication: Chest pain
     Dosage: ACETAMINOPHEN 325MG + TRAMADOL HCL 37.5MG
     Dates: start: 20200420
  13. ACETAMINOPHEN;TRAMADOL HYDROCHLORIDE [Concomitant]
     Indication: Procedural pain
     Dates: start: 20200630
  14. CEFTRIAXONE [Concomitant]
     Active Substance: CEFTRIAXONE
     Indication: Infection prophylaxis
     Route: 042
     Dates: start: 20200611, end: 20200611
  15. CEFTRIAXONE [Concomitant]
     Active Substance: CEFTRIAXONE
     Indication: Inflammation
     Route: 042
     Dates: start: 20200612, end: 20200617
  16. CEFTRIAXONE [Concomitant]
     Active Substance: CEFTRIAXONE
     Dates: start: 20200922, end: 20200922
  17. CHLORHEXIDINE GLUCONATE [Concomitant]
     Active Substance: CHLORHEXIDINE GLUCONATE
     Route: 048
     Dates: start: 20200612, end: 20200612
  18. VASELINE PURE [Concomitant]
     Active Substance: PETROLATUM
     Route: 061
     Dates: start: 20200612, end: 20200612
  19. APROTININ;FIBRINOGEN;THROMBIN [Concomitant]
     Indication: Adhesion
     Dates: start: 20200612, end: 20200612
  20. SUGAMMADEX [Concomitant]
     Active Substance: SUGAMMADEX
     Dates: start: 20200612, end: 20200612
  21. PROPOFOL [Concomitant]
     Active Substance: PROPOFOL
     Dates: start: 20200612, end: 20200612
  22. NOREPINEPHRINE [Concomitant]
     Active Substance: NOREPINEPHRINE
     Dates: start: 20200612, end: 20200612
  23. PHENYLEPHRINE [Concomitant]
     Active Substance: PHENYLEPHRINE HYDROCHLORIDE
     Dates: start: 20200612, end: 20200612
  24. RAMOSETRON HYDROCHLORIDE [Concomitant]
     Active Substance: RAMOSETRON HYDROCHLORIDE
     Dates: start: 20200612, end: 20200612
  25. ROCURONIUM BROMIDE [Concomitant]
     Active Substance: ROCURONIUM BROMIDE
     Dates: start: 20200612, end: 20200612
  26. LIDOCAINE [Concomitant]
     Active Substance: LIDOCAINE
     Dates: start: 20200612, end: 20200612
  27. PANTOPRAZOLE [Concomitant]
     Active Substance: PANTOPRAZOLE
     Dates: start: 20200614, end: 20200630
  28. PANTOPRAZOLE [Concomitant]
     Active Substance: PANTOPRAZOLE
     Dates: start: 20200612, end: 20200612
  29. REMIFENTANIL [Concomitant]
     Active Substance: REMIFENTANIL
     Dates: start: 20200612, end: 20200613
  30. MEPERIDINE [Concomitant]
     Active Substance: MEPERIDINE
     Dates: start: 20200612, end: 20200612
  31. OXYCODONE HYDROCHLORIDE [Concomitant]
     Active Substance: OXYCODONE HYDROCHLORIDE
     Indication: Procedural pain
     Route: 048
     Dates: start: 20200614, end: 20200618
  32. POLYETHYLENE GLYCOL 4000 [Concomitant]
     Active Substance: POLYETHYLENE GLYCOL 4000
     Indication: Constipation
     Dates: start: 20200614, end: 20200616
  33. LACTULOSE [Concomitant]
     Active Substance: LACTULOSE
     Indication: Constipation
     Dates: start: 20200615, end: 20200618
  34. MEGESTROL ACETATE [Concomitant]
     Active Substance: MEGESTROL ACETATE
     Indication: Decreased appetite
     Dates: start: 20200630, end: 20200811
  35. LEVOFLOXACIN [Concomitant]
     Active Substance: LEVOFLOXACIN
     Indication: Infection prophylaxis
     Dates: start: 20200709, end: 20200709
  36. PIPERACILLIN SODIUM\TAZOBACTAM SODIUM [Concomitant]
     Active Substance: PIPERACILLIN SODIUM\TAZOBACTAM SODIUM
     Indication: Infection prophylaxis
     Dates: start: 20200709, end: 20200709
  37. CEFPODOXIME [Concomitant]
     Active Substance: CEFPODOXIME
     Indication: Infection prophylaxis
     Dates: start: 20200710, end: 20200716
  38. FAMOTIDINE [Concomitant]
     Active Substance: FAMOTIDINE
     Indication: Gastritis
     Dates: start: 20200710, end: 20200716
  39. ACETAMINOPHEN [Concomitant]
     Active Substance: ACETAMINOPHEN
     Indication: Pyrexia
     Dates: start: 20200922, end: 20200924
  40. AMOXICILLIN\CLAVULANATE POTASSIUM [Concomitant]
     Active Substance: AMOXICILLIN\CLAVULANATE POTASSIUM
     Indication: Inflammation
     Dates: start: 20200922, end: 20200930
  41. CARBOPLATIN [Concomitant]
     Active Substance: CARBOPLATIN
     Dates: start: 20201124, end: 20210105
  42. GEMCITABINE [Concomitant]
     Active Substance: GEMCITABINE
     Dates: start: 20201124, end: 20210105
  43. PEMBROLIZUMAB [Concomitant]
     Active Substance: PEMBROLIZUMAB
     Dates: start: 20210121, end: 20210121
  44. PEMETREXED [Concomitant]
     Active Substance: PEMETREXED
     Dates: start: 20210316, end: 20210406
  45. IRINOTECAN HYDROCHLORIDE [Concomitant]
     Active Substance: IRINOTECAN HYDROCHLORIDE
     Dates: start: 20210504, end: 20210519
  46. CISPLATIN [Concomitant]
     Active Substance: CISPLATIN
     Dates: start: 20210504, end: 20210519

REACTIONS (2)
  - Pulmonary embolism [Recovered/Resolved]
  - Pericardial effusion [Recovered/Resolved]

NARRATIVE: CASE EVENT DATE: 20200512
